FAERS Safety Report 5914377-9 (Version None)
Quarter: 2008Q4

REPORT INFORMATION
  Report Type: 
  Country: None (occurrence: None)
  Receive Date: 20081007
  Receipt Date: 20080923
  Transmission Date: 20090506
  Serious: Yes (Other)
  Sender: FDA-Public Use
  Company Number: 2008US002522

PATIENT
  Sex: Male
  Weight: 136.1 kg

DRUGS (1)
  1. LEXISCAN [Suspect]
     Indication: SCAN MYOCARDIAL PERFUSION
     Dates: start: 20080923, end: 20080923

REACTIONS (2)
  - INCONTINENCE [None]
  - LOSS OF CONSCIOUSNESS [None]
